FAERS Safety Report 24799110 (Version 2)
Quarter: 2025Q1

REPORT INFORMATION
  Report Type: Spontaneous
  Country: JM (occurrence: JM)
  Receive Date: 20250102
  Receipt Date: 20250127
  Transmission Date: 20250409
  Serious: Yes (Death, Hospitalization, Other)
  Sender: BRISTOL-MYERS SQUIBB COMPANY
  Company Number: JM-BRISTOL-MYERS SQUIBB COMPANY-2024-200777

PATIENT
  Age: 75 Year
  Sex: Female
  Weight: 84 kg

DRUGS (2)
  1. ELIQUIS [Suspect]
     Active Substance: APIXABAN
     Indication: Atrial fibrillation
     Route: 048
  2. VYNDAMAX [Concomitant]
     Active Substance: TAFAMIDIS
     Indication: Cardiac amyloidosis
     Dates: start: 20240729, end: 20241113

REACTIONS (3)
  - Cardiac failure [Fatal]
  - Renal failure [Fatal]
  - Hepatic failure [Fatal]

NARRATIVE: CASE EVENT DATE: 20241002
